FAERS Safety Report 10213939 (Version 1)
Quarter: 2014Q2

REPORT INFORMATION
  Report Type: Spontaneous
  Country: SE (occurrence: None)
  Receive Date: 20140530
  Receipt Date: 20140530
  Transmission Date: 20141212
  Serious: Yes (Hospitalization)
  Sender: FDA-Public Use
  Company Number: SYM-2014-21408

PATIENT
  Sex: Male

DRUGS (4)
  1. VOXRA [Suspect]
     Indication: DEPRESSION
     Route: 048
     Dates: start: 20140323
  2. SOBRIL (OXAZEPAM) (OXAZEPAM) [Concomitant]
  3. ZOLOFT (SERTRALINE HYDROCHLORIDE) (SERTRALINE HYDROCHLORIDE) [Concomitant]
  4. STILNOCT (ZOLPIDEM TARTRATE) (ZOLPIDEM TARTRATE) [Concomitant]

REACTIONS (3)
  - No therapeutic response [None]
  - Fatigue [None]
  - Somnolence [None]
